FAERS Safety Report 8206197-X (Version None)
Quarter: 2012Q1

REPORT INFORMATION
  Report Type: 
  Country: None (occurrence: None)
  Receive Date: 20120313
  Receipt Date: 20120208
  Transmission Date: 20120608
  Serious: Yes (Hospitalization, Disabling, Other)
  Sender: FDA-Public Use
  Company Number: PHHY2012CL019585

PATIENT
  Age: 80 Year
  Sex: Female

DRUGS (3)
  1. OMEPRAZOLE [Concomitant]
     Dosage: UNK, UNK
  2. VALSARTAN  AND HYDROCHLOROTHIAZIDE [Suspect]
     Indication: HYPERTENSION
     Dosage: 1 DF, QD
     Dates: start: 20060101
  3. GLAFORNIL [Concomitant]
     Dosage: UNK, UNK

REACTIONS (3)
  - HIP FRACTURE [None]
  - ABASIA [None]
  - FALL [None]
